FAERS Safety Report 9122131 (Version 1)
Quarter: 2013Q1

REPORT INFORMATION
  Report Type: Report from Study
  Country: US (occurrence: US)
  Receive Date: 20130227
  Receipt Date: 20130227
  Transmission Date: 20140127
  Serious: Yes (Death)
  Sender: FDA-Public Use
  Company Number: US-ASTELLAS-2012US012777

PATIENT
  Age: 74 Year
  Sex: Male

DRUGS (1)
  1. ERLOTINIB TABLET [Suspect]
     Indication: TRACHEAL CANCER
     Dosage: 150 MG, UID/QD
     Route: 048
     Dates: start: 20121205

REACTIONS (4)
  - Off label use [Unknown]
  - Death [Fatal]
  - Nasal discomfort [Unknown]
  - Fatigue [Not Recovered/Not Resolved]
